FAERS Safety Report 4994351-X (Version None)
Quarter: 2006Q1

REPORT INFORMATION
  Report Type: 
  Country: None (occurrence: None)
  Receive Date: 20060314
  Receipt Date: 20050802
  Transmission Date: 20060701
  Serious: Yes (Other)
  Sender: FDA-Public Use
  Company Number: 200512504BCC

PATIENT
  Age: 81 Year
  Sex: Male
  Weight: 70.3075 kg

DRUGS (4)
  1. ALEVE (CAPLET) [Suspect]
     Indication: PYREXIA
     Dosage: 440 MG, ONCE, ORAL
     Route: 048
     Dates: start: 20050614
  2. HYDROCODONE [Concomitant]
  3. PROTONIX [Concomitant]
  4. KLOR-CON [Concomitant]

REACTIONS (1)
  - HAEMATOCHEZIA [None]
